FAERS Safety Report 19462586 (Version 2)
Quarter: 2021Q3

REPORT INFORMATION
  Report Type: Spontaneous
  Country: DE (occurrence: DE)
  Receive Date: 20210625
  Receipt Date: 20210713
  Transmission Date: 20211014
  Serious: Yes (Other)
  Sender: FDA-Public Use
  Company Number: DE-ALLERGAN-2123736US

PATIENT
  Sex: Female
  Weight: 56 kg

DRUGS (2)
  1. ESCITALOPRAM OXALATE ? BP [Suspect]
     Active Substance: ESCITALOPRAM OXALATE
     Indication: PRODUCT USED FOR UNKNOWN INDICATION
     Dosage: 40MG QWEEK 23 KW (MON?WED?FRI?SUN) 10MG; KW 24 (MON?WED?FRI?SUN) 5MG; PLANNED INTAKE UNTIL 20JUN2021
     Route: 065
     Dates: start: 20210607, end: 20210613
  2. ESCITALOPRAM OXALATE ? BP [Suspect]
     Active Substance: ESCITALOPRAM OXALATE
     Dosage: 60 MG QWEEK 22. KW (MON?WED?FRI?SUN) 15MG TAKEN
     Route: 065
     Dates: start: 20210531, end: 20210606

REACTIONS (9)
  - Arrhythmia [Unknown]
  - Feeling cold [Unknown]
  - Gait disturbance [Unknown]
  - Injury [Unknown]
  - Balance disorder [Unknown]
  - Inappropriate schedule of product administration [Unknown]
  - Eye pain [Unknown]
  - Nausea [Unknown]
  - Dizziness [Unknown]

NARRATIVE: CASE EVENT DATE: 20210601
